FAERS Safety Report 8626984 (Version 2)
Quarter: 2013Q4

REPORT INFORMATION
  Report Type: Report from Study
  Country: DE (occurrence: DE)
  Receive Date: 20120620
  Receipt Date: 20131115
  Transmission Date: 20140711
  Serious: Yes (Hospitalization)
  Sender: FDA-Public Use
  Company Number: DE-ROCHE-1078316

PATIENT
  Age: 69 Year
  Sex: Female
  Weight: 56 kg

DRUGS (3)
  1. CAPECITABINE [Suspect]
     Indication: BREAST CANCER
     Dosage: LAST DOSE PRIOR TO THE SAE ON 05/JUN/2012
     Route: 048
     Dates: start: 20120515
  2. NAB-PACLITAXEL [Suspect]
     Indication: BREAST CANCER
     Dosage: LAST DOSE PRIOR TO THE SAE ON 05/JUN/2012
     Route: 042
     Dates: start: 20120515
  3. NEULASTA [Concomitant]
     Route: 065
     Dates: start: 20120530, end: 20120530

REACTIONS (1)
  - General physical health deterioration [Recovered/Resolved]
